FAERS Safety Report 16998761 (Version 1)
Quarter: 2019Q4

REPORT INFORMATION
  Report Type: Spontaneous
  Country: FR (occurrence: FR)
  Receive Date: 20191106
  Receipt Date: 20191106
  Transmission Date: 20200122
  Serious: Yes (Hospitalization)
  Sender: FDA-Public Use
  Company Number: FR-ACCORD-160005

PATIENT
  Age: 66 Year
  Sex: Female
  Weight: 61.7 kg

DRUGS (11)
  1. ZELITREX [Concomitant]
     Active Substance: VALACYCLOVIR HYDROCHLORIDE
     Dosage: STRENGTH 500 MG
  2. ASPIRINE PROTECT [Concomitant]
     Active Substance: ASPIRIN
  3. LASILIX SPECIAL [Suspect]
     Active Substance: FUROSEMIDE
     Indication: HYPONATRAEMIA
     Dosage: STRENGTH 500 MG SCORED TABLET
     Route: 048
     Dates: end: 201810
  4. PANTOPRAZOLE [Concomitant]
     Active Substance: PANTOPRAZOLE
  5. DIFFU K [Concomitant]
     Active Substance: POTASSIUM CHLORIDE
  6. SPIRONOLACTONE. [Suspect]
     Active Substance: SPIRONOLACTONE
     Indication: HYPONATRAEMIA
     Route: 048
     Dates: end: 201810
  7. COUMADIN [Concomitant]
     Active Substance: WARFARIN SODIUM
     Dosage: STRENGTH 5 MG SCORED TABLET
  8. CRESTOR [Concomitant]
     Active Substance: ROSUVASTATIN CALCIUM
     Dosage: STRENGTH  5 MG
  9. EZETROL [Concomitant]
     Active Substance: EZETIMIBE
     Dosage: STRENGTH 10 MG
  10. DULOXETINE. [Concomitant]
     Active Substance: DULOXETINE
  11. ALPRAZOLAM. [Concomitant]
     Active Substance: ALPRAZOLAM

REACTIONS (2)
  - Orthostatic hypotension [Recovered/Resolved]
  - Malaise [Recovered/Resolved]

NARRATIVE: CASE EVENT DATE: 20181003
